FAERS Safety Report 21267052 (Version 1)
Quarter: 2022Q3

REPORT INFORMATION
  Report Type: Spontaneous
  Country: US (occurrence: None)
  Receive Date: 20220829
  Receipt Date: 20220829
  Transmission Date: 20221027
  Serious: Yes (Hospitalization)
  Sender: FDA-Public Use
  Company Number: 2022A299482

PATIENT
  Sex: Male

DRUGS (16)
  1. TEZSPIRE [Suspect]
     Active Substance: TEZEPELUMAB-EKKO
     Indication: Asthma
     Dosage: INJECT 210 MG (1.91 ML PRE-FILLED SYRINGE ) SUBCUTANEOUSLY EVERY 28 DAYS
     Route: 058
  2. ALBUTEROL SU [Concomitant]
  3. ALLOPURINOL [Concomitant]
     Active Substance: ALLOPURINOL
  4. ASPIRIN [Concomitant]
     Active Substance: ASPIRIN
     Dosage: TBE
  5. ATROVENT HFA [Concomitant]
     Active Substance: IPRATROPIUM BROMIDE
     Dosage: AER 17MCG/AC
  6. AZATHIOPRINE [Concomitant]
     Active Substance: AZATHIOPRINE
  7. AZELASTINE H [Concomitant]
     Dosage: SOL
  8. CALCIUM\VITAMIN D [Concomitant]
     Active Substance: CALCIUM\VITAMIN D
     Dosage: 315-200 MG
  9. COLCHICINE [Concomitant]
     Active Substance: COLCHICINE
  10. FLONASE ALLE [Concomitant]
     Dosage: SUS 50MCG/AC
  11. LOVENOX [Concomitant]
     Active Substance: ENOXAPARIN SODIUM
     Dosage: SOL 300MG/3ML
  12. MELATONIN [Concomitant]
     Active Substance: MELATONIN
  13. MONTELUKAST [Concomitant]
     Active Substance: MONTELUKAST SODIUM
  14. SYMBICORT [Concomitant]
     Active Substance: BUDESONIDE\FORMOTEROL FUMARATE DIHYDRATE
     Dosage: 160-4.5MCG
  15. WARFARIN SODIUM [Concomitant]
     Active Substance: WARFARIN SODIUM
  16. ZYRTEC [Concomitant]
     Active Substance: CETIRIZINE HYDROCHLORIDE
     Dosage: ALLER CAP

REACTIONS (1)
  - Hospitalisation [Not Recovered/Not Resolved]
